FAERS Safety Report 5559494-0 (Version None)
Quarter: 2007Q4

REPORT INFORMATION
  Report Type: 
  Country: None (occurrence: None)
  Receive Date: 20071214
  Receipt Date: 20071003
  Transmission Date: 20080405
  Serious: No
  Sender: FDA-Public Use
  Company Number: US-ABBOTT-07P-163-0419560-00

PATIENT
  Sex: Female
  Weight: 58.112 kg

DRUGS (1)
  1. HUMIRA [Suspect]
     Indication: RHEUMATOID ARTHRITIS
     Route: 058
     Dates: start: 20070112, end: 20071003

REACTIONS (4)
  - COUGH [None]
  - MALAISE [None]
  - PAIN [None]
  - RHINORRHOEA [None]
